FAERS Safety Report 17865352 (Version 1)
Quarter: 2020Q2

REPORT INFORMATION
  Report Type: Spontaneous
  Country: TN (occurrence: TN)
  Receive Date: 20200605
  Receipt Date: 20200605
  Transmission Date: 20200714
  Serious: Yes (Hospitalization, Other)
  Sender: FDA-Public Use
  Company Number: TN-ACCORD-183781

PATIENT
  Age: 48 Year
  Sex: Female

DRUGS (1)
  1. DOCETAXEL. [Suspect]
     Active Substance: DOCETAXEL
     Indication: BREAST CANCER

REACTIONS (5)
  - Skin plaque [Recovering/Resolving]
  - Neutropenia [Recovering/Resolving]
  - Aplasia [Recovered/Resolved]
  - Extravasation [Recovering/Resolving]
  - Pyrexia [Recovered/Resolved]
